FAERS Safety Report 10406849 (Version 2)
Quarter: 2014Q3

REPORT INFORMATION
  Report Type: Spontaneous
  Country: US (occurrence: US)
  Receive Date: 20140825
  Receipt Date: 20140918
  Transmission Date: 20150326
  Serious: No
  Sender: FDA-Public Use
  Company Number: US-PFIZER INC-2014234369

PATIENT
  Age: 20 Year
  Sex: Male
  Weight: 90.7 kg

DRUGS (2)
  1. POTASSIUM DICHROMATE [Suspect]
     Active Substance: POTASSIUM DICHROMATE
     Dosage: UNK
  2. NEOMYCIN SULFATE. [Suspect]
     Active Substance: NEOMYCIN SULFATE
     Dosage: UNK

REACTIONS (1)
  - Drug hypersensitivity [Unknown]
